FAERS Safety Report 16731846 (Version 1)
Quarter: 2019Q3

REPORT INFORMATION
  Report Type: Spontaneous
  Country: US (occurrence: US)
  Receive Date: 20190822
  Receipt Date: 20190822
  Transmission Date: 20191005
  Serious: Yes (Hospitalization, Other)
  Sender: FDA-Public Use
  Company Number: US-IMPAX LABORATORIES, LLC-2019-IPXL-01683

PATIENT
  Age: 31 Year
  Sex: Male

DRUGS (4)
  1. DOXYCYCLINE HYCLATE DELAYED RELEASE [Suspect]
     Active Substance: DOXYCYCLINE HYCLATE
     Indication: SYPHILIS
     Dosage: UNK 10 DAYS
     Route: 065
  2. DOXYCYCLINE HYCLATE DELAYED RELEASE [Suspect]
     Active Substance: DOXYCYCLINE HYCLATE
     Dosage: UNK 1-MONTH COURSE
     Route: 065
  3. PENICILLIN G BENETHAMINE [Suspect]
     Active Substance: BENETHAMINE PENICILLIN
     Indication: SYPHILIS
     Dosage: 2 DOSAGE FORM
     Route: 030
  4. TETRACYCLINE HYDROCHLORIDE. [Suspect]
     Active Substance: TETRACYCLINE HYDROCHLORIDE
     Indication: SYPHILIS
     Dosage: UNK 1 MONTH COURSE
     Route: 065

REACTIONS (2)
  - Psoriasis [Recovered/Resolved]
  - Jarisch-Herxheimer reaction [Recovered/Resolved]
